FAERS Safety Report 8928840 (Version 1)
Quarter: 2012Q4

REPORT INFORMATION
  Report Type: 
  Country: FR (occurrence: FR)
  Receive Date: 20121128
  Receipt Date: 20121128
  Transmission Date: 20130627
  Serious: Yes (Hospitalization, Other)
  Sender: FDA-Public Use
  Company Number: FR-009507513-1211FRA008948

PATIENT
  Sex: Female
  Weight: 64 kg

DRUGS (7)
  1. VICTRELIS [Suspect]
     Indication: CHRONIC HEPATITIS C
     Dosage: 800 mg, tid
     Route: 048
     Dates: start: 201206, end: 20121016
  2. REBETOL [Suspect]
     Indication: CHRONIC HEPATITIS C
     Dosage: 400 mg, bid
     Route: 048
     Dates: start: 201204, end: 20121016
  3. PEGASYS [Suspect]
     Indication: CHRONIC HEPATITIS C
     Dosage: 180 Microgram, qw
     Route: 058
     Dates: start: 201204, end: 20121016
  4. CALCIDOSE [Concomitant]
     Indication: PRODUCT USED FOR UNKNOWN INDICATION
     Dosage: 1 DF, qam
  5. DAFALGAN [Concomitant]
     Indication: PRODUCT USED FOR UNKNOWN INDICATION
     Dosage: 500 mg, bid
  6. STAGID [Concomitant]
     Indication: TYPE 2 DIABETES MELLITUS
     Dosage: 700 mg, tid
  7. HUMALOG MIX [Concomitant]
     Indication: TYPE 2 DIABETES MELLITUS
     Dosage: 34 IU, qd

REACTIONS (2)
  - Aplastic anaemia [Recovering/Resolving]
  - Thrombocytopenia [Recovering/Resolving]
